FAERS Safety Report 4817915-2 (Version None)
Quarter: 2005Q4

REPORT INFORMATION
  Report Type: 
  Country: None (occurrence: None)
  Receive Date: 20051102
  Receipt Date: 20051024
  Transmission Date: 20060501
  Serious: Yes (Other)
  Sender: FDA-Public Use
  Company Number: 2005GB02077

PATIENT
  Age: 5 Year
  Sex: Male

DRUGS (1)
  1. PULMICORT [Suspect]
     Dosage: RESPULES
     Route: 055

REACTIONS (3)
  - HALLUCINATION [None]
  - MUSCLE RIGIDITY [None]
  - STARING [None]
